FAERS Safety Report 5603063-0 (Version None)
Quarter: 2008Q1

REPORT INFORMATION
  Report Type: 
  Country: None (occurrence: None)
  Receive Date: 20080125
  Receipt Date: 20080115
  Transmission Date: 20080703
  Serious: Yes (Hospitalization, Other)
  Sender: FDA-Public Use
  Company Number: US-PFIZER INC-2007078004

PATIENT
  Sex: Female
  Weight: 97.7 kg

DRUGS (14)
  1. CHANTIX [Suspect]
     Indication: SMOKING CESSATION THERAPY
     Dates: start: 20070801, end: 20070913
  2. DARVOCET [Concomitant]
  3. LITHIUM CARBONATE [Concomitant]
  4. ASPIRIN [Concomitant]
  5. LASIX [Concomitant]
  6. POTASSIUM CHLORIDE [Concomitant]
  7. PLAVIX [Concomitant]
  8. ZOCOR [Concomitant]
  9. PREDNISONE TAB [Concomitant]
  10. LOPRESSOR [Concomitant]
  11. WARFARIN SODIUM [Concomitant]
  12. LEVOTHYROXINE SODIUM [Concomitant]
  13. ADALAT [Concomitant]
  14. ZYPREXA [Concomitant]

REACTIONS (2)
  - CEREBROVASCULAR ACCIDENT [None]
  - HYPOAESTHESIA [None]
